FAERS Safety Report 4555469-9 (Version None)
Quarter: 2004Q4

REPORT INFORMATION
  Report Type: 
  Country: None (occurrence: None)
  Receive Date: 20041217
  Receipt Date: 20040420
  Transmission Date: 20050328
  Serious: Yes (Hospitalization)
  Sender: FDA-Public Use
  Company Number: PHEH2004US04424

PATIENT
  Age: 60 Year
  Sex: Female

DRUGS (6)
  1. SANDOSTATIN [Suspect]
     Indication: CARCINOID SYNDROME
     Dosage: SEE IMAGE
     Dates: end: 20040414
  2. SANDOSTATIN [Suspect]
     Indication: CARCINOID SYNDROME
     Dosage: SEE IMAGE
     Dates: start: 20040415
  3. ZOCOR [Concomitant]
  4. INTERFERON (INTERFERON) [Concomitant]
  5. XANAX [Concomitant]
  6. METHADONE HCL [Concomitant]

REACTIONS (2)
  - ABDOMINAL PAIN [None]
  - DIARRHOEA [None]
